FAERS Safety Report 23568925 (Version 1)
Quarter: 2024Q1

REPORT INFORMATION
  Report Type: Report from Study
  Country: US (occurrence: US)
  Receive Date: 20240227
  Receipt Date: 20240227
  Transmission Date: 20240410
  Serious: No
  Sender: FDA-Public Use
  Company Number: US-ORG100014127-2023000807

PATIENT
  Age: 23 Year
  Sex: Female

DRUGS (4)
  1. METOPIRONE [Suspect]
     Active Substance: METYRAPONE
     Indication: Cushing^s syndrome
     Dosage: 250 MG: TAKE 1 CAPSULE (250 MILLIGRAMS) BY MOUTH 3 TIMES A DAY
     Route: 048
     Dates: start: 20230624
  2. LORAZEPAM [Concomitant]
     Active Substance: LORAZEPAM
     Indication: Product used for unknown indication
  3. LOSARTAN POT TAB 50MG; [Concomitant]
     Indication: Product used for unknown indication
  4. VITAMIN D TAB 5000IU [Concomitant]
     Indication: Product used for unknown indication

REACTIONS (3)
  - Fluid retention [Recovered/Resolved]
  - Hypertension [Recovered/Resolved]
  - Off label use [Not Recovered/Not Resolved]

NARRATIVE: CASE EVENT DATE: 20230624
